FAERS Safety Report 23197164 (Version 1)
Quarter: 2023Q4

REPORT INFORMATION
  Report Type: Spontaneous
  Country: US (occurrence: None)
  Receive Date: 20231116
  Receipt Date: 20231116
  Transmission Date: 20240110
  Serious: Yes (unspecified)
  Sender: FDA-Public Use
  Company Number: None

PATIENT
  Age: 37 Year
  Sex: Female
  Weight: 72.6 kg

DRUGS (2)
  1. PITOCIN [Suspect]
     Active Substance: OXYTOCIN
  2. LABETALOL [Suspect]
     Active Substance: LABETALOL\LABETALOL HYDROCHLORIDE

REACTIONS (9)
  - Exposure during pregnancy [None]
  - Maternal drugs affecting foetus [None]
  - Device delivery system issue [None]
  - Device malfunction [None]
  - Device dislocation [None]
  - Foetal heart rate deceleration abnormality [None]
  - Prolonged labour [None]
  - Obstetric procedure complication [None]
  - Device use error [None]

NARRATIVE: CASE EVENT DATE: 20231101
